FAERS Safety Report 22767644 (Version 3)
Quarter: 2024Q1

REPORT INFORMATION
  Report Type: Spontaneous
  Country: KR (occurrence: KR)
  Receive Date: 20230731
  Receipt Date: 20240119
  Transmission Date: 20240410
  Serious: Yes (Other)
  Sender: FDA-Public Use
  Company Number: KR-MYLANLABS-2023M1079091

PATIENT
  Age: 73 Year
  Sex: Female

DRUGS (3)
  1. NORVASC [Suspect]
     Active Substance: AMLODIPINE BESYLATE
     Indication: Product used for unknown indication
     Dosage: 5 MILLIGRAM
     Route: 065
  2. ATORVASTATIN CALCIUM TRIHYDRATE\EZETIMIBE [Suspect]
     Active Substance: ATORVASTATIN CALCIUM TRIHYDRATE\EZETIMIBE
     Indication: Primary hypercholesterolaemia
     Dosage: UNK
     Route: 048
  3. ATORVASTATIN CALCIUM TRIHYDRATE\EZETIMIBE [Suspect]
     Active Substance: ATORVASTATIN CALCIUM TRIHYDRATE\EZETIMIBE
     Indication: Type IIa hyperlipidaemia

REACTIONS (1)
  - Blindness [Recovered/Resolved]
